FAERS Safety Report 18200213 (Version 1)
Quarter: 2020Q3

REPORT INFORMATION
  Report Type: Spontaneous
  Country: US (occurrence: US)
  Receive Date: 20200827
  Receipt Date: 20200827
  Transmission Date: 20201103
  Serious: No
  Sender: FDA-Public Use
  Company Number: US-SA-2020SA224016

PATIENT

DRUGS (1)
  1. DUPIXENT [Suspect]
     Active Substance: DUPILUMAB
     Indication: ECZEMA
     Dosage: UNK UNK, QOW
     Dates: start: 20200627

REACTIONS (6)
  - Injection site pruritus [Unknown]
  - Injection site swelling [Unknown]
  - Muscle spasms [Unknown]
  - Pruritus [Not Recovered/Not Resolved]
  - Condition aggravated [Unknown]
  - Injection site erythema [Unknown]

NARRATIVE: CASE EVENT DATE: 2020
